FAERS Safety Report 16169898 (Version 2)
Quarter: 2019Q2

REPORT INFORMATION
  Report Type: Spontaneous
  Country: JP (occurrence: JP)
  Receive Date: 20190408
  Receipt Date: 20190524
  Transmission Date: 20190711
  Serious: Yes (Life-Threatening)
  Sender: FDA-Public Use
  Company Number: JP-ROCHE-2298348

PATIENT
  Age: 50 Year
  Sex: Male

DRUGS (7)
  1. REBAMIPIDE [Concomitant]
     Active Substance: REBAMIPIDE
     Route: 048
     Dates: start: 2011
  2. CYTOTEC [Concomitant]
     Active Substance: MISOPROSTOL
     Route: 048
     Dates: start: 2011
  3. WARFARIN [Concomitant]
     Active Substance: WARFARIN
     Indication: CARDIAC VENTRICULAR THROMBOSIS
     Route: 048
     Dates: start: 2011
  4. WARFARIN [Concomitant]
     Active Substance: WARFARIN
     Route: 048
     Dates: start: 20190226
  5. XOFLUZA [Suspect]
     Active Substance: BALOXAVIR MARBOXIL
     Indication: INFLUENZA
     Route: 048
     Dates: start: 20190217, end: 20190217
  6. PLAVIX [Concomitant]
     Active Substance: CLOPIDOGREL BISULFATE
     Indication: MYOCARDIAL INFARCTION
     Route: 048
     Dates: start: 2011
  7. BLOPRESS [Concomitant]
     Active Substance: CANDESARTAN CILEXETIL
     Route: 048
     Dates: start: 2011

REACTIONS (1)
  - Small intestinal haemorrhage [Recovered/Resolved]

NARRATIVE: CASE EVENT DATE: 20190224
